FAERS Safety Report 23334609 (Version 4)
Quarter: 2024Q1

REPORT INFORMATION
  Report Type: Other
  Country: US (occurrence: US)
  Receive Date: 20231224
  Receipt Date: 20240318
  Transmission Date: 20240410
  Serious: No
  Sender: FDA-Public Use
  Company Number: US-TRAVERE-2023TVT00768

PATIENT
  Age: 2 Month
  Sex: Female

DRUGS (3)
  1. CHOLBAM [Suspect]
     Active Substance: CHOLIC ACID
     Indication: Congenital anomaly
     Route: 048
     Dates: start: 20231110
  2. CHOLBAM [Suspect]
     Active Substance: CHOLIC ACID
     Route: 048
     Dates: start: 20231110
  3. VITAMINS [Concomitant]
     Active Substance: VITAMINS

REACTIONS (5)
  - Diarrhoea [Unknown]
  - Flatulence [Unknown]
  - Vomiting [Unknown]
  - Abdominal discomfort [Unknown]
  - Ear infection [Unknown]

NARRATIVE: CASE EVENT DATE: 20231117
